FAERS Safety Report 16338909 (Version 3)
Quarter: 2019Q2

REPORT INFORMATION
  Report Type: Report from Study
  Country: CA (occurrence: CA)
  Receive Date: 20190521
  Receipt Date: 20190613
  Transmission Date: 20190711
  Serious: Yes (Hospitalization, Other)
  Sender: FDA-Public Use
  Company Number: CA-GLAXOSMITHKLINE-CA2019GSK062878

PATIENT
  Sex: Female

DRUGS (2)
  1. MEPOLIZUMAB [Suspect]
     Active Substance: MEPOLIZUMAB
     Dosage: 100 MG, Z, MONTHLY
     Route: 042
  2. MEPOLIZUMAB [Suspect]
     Active Substance: MEPOLIZUMAB
     Indication: ASTHMA
     Dosage: 100 MG, Z, MONTHLY
     Route: 042
     Dates: start: 20180316

REACTIONS (9)
  - Headache [Unknown]
  - Myelodysplastic syndrome [Unknown]
  - Haemoglobin abnormal [Unknown]
  - Bone marrow disorder [Unknown]
  - Anaemia [Unknown]
  - Contusion [Unknown]
  - Blood disorder [Unknown]
  - Injection site haemorrhage [Unknown]
  - Red blood cell count decreased [Unknown]
